FAERS Safety Report 9325248 (Version 1)
Quarter: 2013Q2

REPORT INFORMATION
  Report Type: Spontaneous
  Country: AR (occurrence: AR)
  Receive Date: 20130604
  Receipt Date: 20130604
  Transmission Date: 20140414
  Serious: Yes (Other)
  Sender: FDA-Public Use
  Company Number: AR-AMGEN-ARGSP2013038911

PATIENT
  Age: 58 Year
  Sex: Female

DRUGS (2)
  1. ENBREL [Suspect]
     Indication: RHEUMATOID ARTHRITIS
     Dosage: 50 MG, WEEKLY
     Dates: start: 20130101, end: 2013
  2. ENBREL [Suspect]
     Dosage: 50 MG, WEEKLY
     Dates: start: 201304, end: 20130516

REACTIONS (6)
  - Tonsillitis [Recovered/Resolved]
  - Arthropathy [Unknown]
  - Pain [Unknown]
  - Arthralgia [Unknown]
  - Back pain [Unknown]
  - Influenza [Recovered/Resolved]
